FAERS Safety Report 5841849-8 (Version None)
Quarter: 2008Q3

REPORT INFORMATION
  Report Type: 
  Country: None (occurrence: None)
  Receive Date: 20080812
  Receipt Date: 20080806
  Transmission Date: 20090109
  Serious: Yes (Hospitalization)
  Sender: FDA-Public Use
  Company Number: JP-EISAI MEDICAL RESEARCH-E2090-00460-SPO-JP

PATIENT
  Sex: Male

DRUGS (29)
  1. EXCEGRAN [Suspect]
     Indication: CONVULSION
     Route: 048
     Dates: start: 20080403, end: 20080511
  2. AMLODIPINE BESYLATE [Concomitant]
     Route: 048
     Dates: end: 20080511
  3. AMLODIPINE BESYLATE [Concomitant]
     Dates: start: 20080101
  4. BLOPRESS [Concomitant]
     Route: 048
     Dates: end: 20080511
  5. BLOPRESS [Concomitant]
     Dates: start: 20080101
  6. GASMOTIN [Concomitant]
     Route: 048
     Dates: end: 20080511
  7. AMOBAN [Concomitant]
     Route: 048
     Dates: end: 20080511
  8. BASEN [Concomitant]
     Route: 048
     Dates: end: 20080511
  9. LIPITOR [Concomitant]
     Route: 048
     Dates: end: 20080511
  10. AMARYL [Concomitant]
     Route: 048
     Dates: end: 20080511
  11. MELBIN [Concomitant]
     Dates: end: 20080511
  12. TRANSAMIN [Concomitant]
     Indication: SUBDURAL HAEMATOMA
     Route: 048
     Dates: start: 20080507, end: 20080511
  13. INSULIN [Concomitant]
     Indication: HYPERGLYCAEMIA
     Dates: start: 20080512
  14. PREDONISOLONE SODIUM SUCCINATE [Concomitant]
     Dates: start: 20080515, end: 20080519
  15. PREDONISOLONE SODIUM SUCCINATE [Concomitant]
     Dates: start: 20080520
  16. METHYLPREDONISOLONE [Concomitant]
     Route: 065
     Dates: start: 20080511
  17. PREDONINE [Concomitant]
     Route: 065
     Dates: start: 20080511, end: 20080519
  18. PREDONINE [Concomitant]
     Route: 048
     Dates: start: 20080520, end: 20080522
  19. PREDONINE [Concomitant]
     Route: 048
     Dates: start: 20080523, end: 20080526
  20. PREDONINE [Concomitant]
     Route: 048
     Dates: start: 20080527, end: 20080530
  21. PREDONINE [Concomitant]
     Route: 048
     Dates: start: 20080531
  22. OMEPRAZOLE [Concomitant]
     Indication: DUODENAL ULCER
     Dosage: UNKNOWN
     Route: 065
     Dates: start: 20080513, end: 20080101
  23. NEUPOGEN [Concomitant]
     Dates: start: 20080101
  24. ANTIBIOTICS [Concomitant]
     Indication: PYREXIA
     Dates: start: 20080101
  25. PSL [Concomitant]
     Route: 065
     Dates: start: 20080605, end: 20080611
  26. PSL [Concomitant]
     Route: 065
     Dates: start: 20080612, end: 20080618
  27. PSL [Concomitant]
     Route: 065
     Dates: start: 20080619, end: 20080702
  28. PSL [Concomitant]
     Route: 065
     Dates: start: 20080703
  29. CELESTAMINE TAB [Concomitant]
     Indication: DRUG ERUPTION
     Route: 048
     Dates: start: 20080507, end: 20080511

REACTIONS (1)
  - DRUG RASH WITH EOSINOPHILIA AND SYSTEMIC SYMPTOMS [None]
